FAERS Safety Report 13058595 (Version 1)
Quarter: 2016Q4

REPORT INFORMATION
  Report Type: Spontaneous
  Country: US (occurrence: US)
  Receive Date: 20161223
  Receipt Date: 20161223
  Transmission Date: 20170207
  Serious: No
  Sender: FDA-Public Use
  Company Number: US-ELI_LILLY_AND_COMPANY-US201611004384

PATIENT
  Age: 27 Year
  Sex: Male

DRUGS (1)
  1. CIALIS [Suspect]
     Active Substance: TADALAFIL
     Indication: PRODUCT USED FOR UNKNOWN INDICATION
     Dosage: 20 MG, SINGLE
     Route: 065
     Dates: start: 20161110, end: 20161110

REACTIONS (4)
  - Ejaculation disorder [Unknown]
  - Intentional product misuse [Unknown]
  - Spontaneous ejaculation [Unknown]
  - Erection increased [Unknown]

NARRATIVE: CASE EVENT DATE: 20161110
